FAERS Safety Report 7370273-4 (Version None)
Quarter: 2011Q1

REPORT INFORMATION
  Report Type: 
  Country: None (occurrence: None)
  Receive Date: 20110323
  Receipt Date: 20110317
  Transmission Date: 20110831
  Serious: Yes (Death)
  Sender: FDA-Public Use
  Company Number: PHHY2011DE22310

PATIENT
  Age: 62 Year
  Sex: Male

DRUGS (1)
  1. ZOMETA [Suspect]

REACTIONS (4)
  - RENAL FAILURE CHRONIC [None]
  - WRONG TECHNIQUE IN DRUG USAGE PROCESS [None]
  - MICTURITION DISORDER [None]
  - CREATININE RENAL CLEARANCE DECREASED [None]
